FAERS Safety Report 16311307 (Version 7)
Quarter: 2023Q1

REPORT INFORMATION
  Report Type: Report from Study
  Country: CA (occurrence: CA)
  Receive Date: 20190514
  Receipt Date: 20230315
  Transmission Date: 20230417
  Serious: Yes (Hospitalization)
  Sender: FDA-Public Use
  Company Number: PHHY2010CA28961

PATIENT
  Age: 67 Year
  Sex: Female

DRUGS (12)
  1. ZOMETA [Suspect]
     Active Substance: ZOLEDRONIC ACID
     Indication: Breast cancer
     Dosage: 4 MG (EVERY 10 TO 12 WEEKS) VIAL
     Route: 042
     Dates: start: 20100312
  2. ZOMETA [Suspect]
     Active Substance: ZOLEDRONIC ACID
     Dosage: 4 MG, QMO (EVERY 4 WEEKS)
     Route: 042
     Dates: start: 20100312
  3. ZOMETA [Suspect]
     Active Substance: ZOLEDRONIC ACID
     Dosage: 4 MG (12 WEEKS)
     Route: 042
     Dates: start: 20100312
  4. ZOMETA [Suspect]
     Active Substance: ZOLEDRONIC ACID
     Dosage: 4 MG, QMO
     Route: 042
     Dates: start: 20120302
  5. ZOMETA [Suspect]
     Active Substance: ZOLEDRONIC ACID
     Dosage: 4 MG, QMO
     Route: 042
     Dates: start: 20120306
  6. ZOMETA [Suspect]
     Active Substance: ZOLEDRONIC ACID
     Dosage: 4 MG, QMO
     Route: 042
     Dates: start: 20120329
  7. ZOMETA [Suspect]
     Active Substance: ZOLEDRONIC ACID
     Dosage: 4 MG, QMO
     Route: 042
     Dates: start: 20131224
  8. ZOMETA [Suspect]
     Active Substance: ZOLEDRONIC ACID
     Dosage: 4 MG, QMO
     Route: 042
     Dates: start: 20150210
  9. ZOMETA [Suspect]
     Active Substance: ZOLEDRONIC ACID
     Dosage: 4 MG, EVERY 8 WEEKS
     Route: 065
     Dates: start: 20160122
  10. ZOMETA [Suspect]
     Active Substance: ZOLEDRONIC ACID
     Dosage: 4 MG, EVERY 3 MONTHS
     Route: 065
     Dates: start: 20160713
  11. ZOMETA [Suspect]
     Active Substance: ZOLEDRONIC ACID
     Dosage: 4 MG, QMO
     Route: 065
     Dates: start: 20190404
  12. ZOMETA [Suspect]
     Active Substance: ZOLEDRONIC ACID
     Dosage: 4 MG, (EVERY 12 WEEKS)
     Route: 065

REACTIONS (25)
  - Pneumonia [Unknown]
  - Asthenia [Unknown]
  - Albumin globulin ratio decreased [Unknown]
  - Protein total increased [Unknown]
  - Carbon dioxide increased [Unknown]
  - Back pain [Not Recovered/Not Resolved]
  - Herpes zoster [Recovering/Resolving]
  - Feeling abnormal [Unknown]
  - Muscle disorder [Unknown]
  - Arthropathy [Unknown]
  - Infusion site discomfort [Unknown]
  - Infusion site extravasation [Unknown]
  - Mean platelet volume decreased [Unknown]
  - Blood phosphorus decreased [Unknown]
  - Nasopharyngitis [Unknown]
  - Productive cough [Unknown]
  - Sputum discoloured [Unknown]
  - Blood calcium increased [Unknown]
  - Infusion site erythema [Unknown]
  - Infusion site swelling [Unknown]
  - Pyrexia [Unknown]
  - Chills [Unknown]
  - Cough [Unknown]
  - Pain [Unknown]
  - Inappropriate schedule of product administration [Unknown]

NARRATIVE: CASE EVENT DATE: 20110111
